FAERS Safety Report 23261613 (Version 1)
Quarter: 2023Q4

REPORT INFORMATION
  Report Type: Spontaneous
  Country: TR (occurrence: TR)
  Receive Date: 20231205
  Receipt Date: 20231205
  Transmission Date: 20240109
  Serious: Yes (Death, Other)
  Sender: FDA-Public Use
  Company Number: TR-AMGEN-TURSP2023212119

PATIENT
  Age: 23 Year
  Sex: Male

DRUGS (15)
  1. FILGRASTIM [Suspect]
     Active Substance: FILGRASTIM
     Indication: Acute lymphocytic leukaemia
     Dosage: 0.5 MICROGRAM/KILOGRAM/ QD/ FROM D1 UNTIL NEUTROPHIL RECOVERY
     Route: 065
  2. FLUDARABINE [Concomitant]
     Active Substance: FLUDARABINE PHOSPHATE
     Dosage: 30 MILLILITRE PER SQUARE METRE, D1-5
  3. CYTARABINE [Concomitant]
     Active Substance: CYTARABINE
     Dosage: 2000 MILLILITRE PER SQUARE METRE, D1-5
  4. INOTUZUMAB OZOGAMICIN [Concomitant]
     Active Substance: INOTUZUMAB OZOGAMICIN
     Dosage: 0.8 MG/SQ.METER ON DAY 1
  5. INOTUZUMAB OZOGAMICIN [Concomitant]
     Active Substance: INOTUZUMAB OZOGAMICIN
     Dosage: 0.5 MG/ SQ.METER ON DAY 8 AND 15
  6. RUXOLITINIB [Concomitant]
     Active Substance: RUXOLITINIB
     Dosage: 25 MILLIGRAM BID, FROM DAY 1 TO 14
  7. RITUXIMAB [Concomitant]
     Active Substance: RITUXIMAB
     Dosage: 375 MG/SQ.METER ON DAYS 1 AND 11
  8. VINCRISTINE [Concomitant]
     Active Substance: VINCRISTINE
     Dosage: 2 MILLIGRAM, QWK ON DAYS 1, 8, AND 15
     Route: 042
  9. DEXAMETHASONE [Concomitant]
     Active Substance: DEXAMETHASONE
     Dosage: UNK, ON DAYS 1-4 AND 15-18
     Route: 042
  10. DEXAMETHASONE [Concomitant]
     Active Substance: DEXAMETHASONE
     Dosage: UNK, ON DAYS 1-4 AND 15-18
     Route: 048
  11. PEGASPARGASE [Concomitant]
     Active Substance: PEGASPARGASE
     Dosage: 2500 UNIT/SQ.METER INTRAVENOUS ON DAY 1
     Route: 042
  12. METHYLPREDNISOLONE [Concomitant]
     Active Substance: METHYLPREDNISOLONE
     Dosage: 2 MG/KG/QD TO MANAGE THE CONDITION
  13. CYCLOSPORINE [Concomitant]
     Active Substance: CYCLOSPORINE
  14. TACROLIMUS [Concomitant]
     Active Substance: TACROLIMUS
  15. MYCOPHENOLATE MOFETIL [Concomitant]
     Active Substance: MYCOPHENOLATE MOFETIL

REACTIONS (4)
  - Graft versus host disease in gastrointestinal tract [Unknown]
  - Bone marrow failure [Unknown]
  - Acinetobacter sepsis [Fatal]
  - Lymph node pain [Unknown]
